FAERS Safety Report 4620880-4 (Version None)
Quarter: 2005Q1

REPORT INFORMATION
  Report Type: 
  Country: None (occurrence: None)
  Receive Date: 20050325
  Receipt Date: 20050316
  Transmission Date: 20050727
  Serious: Yes (Other)
  Sender: FDA-Public Use
  Company Number: S05-USA-01454-01

PATIENT

DRUGS (2)
  1. LEXAPRO [Suspect]
     Dosage: 30 MG QD; PO
     Route: 048
  2. WELLBUTRIN [Concomitant]

REACTIONS (1)
  - CONVULSION [None]
